FAERS Safety Report 9656157 (Version 1)
Quarter: 2013Q4

REPORT INFORMATION
  Report Type: Spontaneous
  Country: US (occurrence: None)
  Receive Date: 20131029
  Receipt Date: 20131029
  Transmission Date: 20140711
  Serious: Yes (Other)
  Sender: FDA-Public Use
  Company Number: None

PATIENT
  Age: 62 None
  Sex: Female

DRUGS (10)
  1. CIPROFLOXACN 250 MG [Suspect]
     Indication: URINARY TRACT INFECTION
     Dosage: TABLET EVERY 12 HOURS FOR 5 DAYS TWICE DAILY
     Route: 048
     Dates: start: 20131010, end: 20131015
  2. CIPROFLOXACN 250 MG [Suspect]
     Indication: ESCHERICHIA BACTERAEMIA
     Dosage: TABLET EVERY 12 HOURS FOR 5 DAYS TWICE DAILY
     Route: 048
     Dates: start: 20131010, end: 20131015
  3. TEGRETOL [Concomitant]
  4. METROPROLOL [Concomitant]
  5. LOSARTAN POLASSIUM [Concomitant]
  6. CRESTOR [Concomitant]
  7. CLONAZEPAM [Concomitant]
  8. SETRALINE [Concomitant]
  9. PANTOPRAZOLE [Concomitant]
  10. EFFIENT [Concomitant]

REACTIONS (1)
  - Myalgia [None]
